FAERS Safety Report 14794600 (Version 1)
Quarter: 2018Q2

REPORT INFORMATION
  Report Type: Spontaneous
  Country: TW (occurrence: TW)
  Receive Date: 20180423
  Receipt Date: 20180423
  Transmission Date: 20180711
  Serious: Yes (Hospitalization)
  Sender: FDA-Public Use
  Company Number: TW-ELI_LILLY_AND_COMPANY-TW201804010182

PATIENT
  Age: 48 Year
  Sex: Male
  Weight: 45 kg

DRUGS (6)
  1. ERBITUX [Suspect]
     Active Substance: CETUXIMAB
     Indication: LARYNGEAL CANCER RECURRENT
     Dosage: 400 MG, UNKNOWN
     Route: 041
     Dates: start: 20161014, end: 20170103
  2. CISPLATIN. [Concomitant]
     Active Substance: CISPLATIN
     Indication: LARYNGEAL CANCER RECURRENT
     Dosage: UNK, WEEKLY (1/W)
     Route: 065
     Dates: start: 20161006
  3. 5-FLUOROURACIL                     /00098801/ [Concomitant]
     Active Substance: FLUOROURACIL
     Indication: LARYNGEAL CANCER RECURRENT
     Dosage: UNK, UNKNOWN
     Route: 065
     Dates: start: 20170425, end: 20170628
  4. ERBITUX [Suspect]
     Active Substance: CETUXIMAB
     Dosage: UNK, UNKNOWN
     Route: 041
     Dates: start: 20170425, end: 20170628
  5. DOCETAXEL. [Concomitant]
     Active Substance: DOCETAXEL
     Indication: LARYNGEAL CANCER RECURRENT
     Dosage: UNK, UNKNOWN
     Route: 065
     Dates: start: 20170425, end: 20170628
  6. CISPLATIN. [Concomitant]
     Active Substance: CISPLATIN
     Dosage: UNK, UNKNOWN
     Route: 065
     Dates: start: 20170425, end: 20170628

REACTIONS (1)
  - Febrile neutropenia [Recovering/Resolving]

NARRATIVE: CASE EVENT DATE: 20170523
